FAERS Safety Report 10240162 (Version 1)
Quarter: 2014Q2

REPORT INFORMATION
  Report Type: Spontaneous
  Country: US (occurrence: US)
  Receive Date: 20140617
  Receipt Date: 20140617
  Transmission Date: 20141212
  Serious: Yes (Other)
  Sender: FDA-Public Use
  Company Number: US-UCBSA-2014001587

PATIENT
  Age: 38 Year
  Sex: Male
  Weight: 72.57 kg

DRUGS (1)
  1. CIMZIA [Suspect]
     Indication: CROHN^S DISEASE
     Dosage: 400 MG, EV 4 WEEKS
     Route: 058

REACTIONS (2)
  - Atrioventricular block [Not Recovered/Not Resolved]
  - Pericarditis [Recovered/Resolved]
